FAERS Safety Report 22195161 (Version 4)
Quarter: 2023Q4

REPORT INFORMATION
  Report Type: Report from Study
  Country: JP (occurrence: JP)
  Receive Date: 20230411
  Receipt Date: 20231224
  Transmission Date: 20240110
  Serious: Yes (Other)
  Sender: FDA-Public Use
  Company Number: JP-002147023-NVSJ2023JP004498

PATIENT
  Age: 23 Year
  Sex: Female
  Weight: 40 kg

DRUGS (15)
  1. ILARIS [Suspect]
     Active Substance: CANAKINUMAB
     Indication: Familial mediterranean fever
     Dosage: 150 MG
     Route: 058
     Dates: start: 20220218, end: 20220218
  2. ILARIS [Suspect]
     Active Substance: CANAKINUMAB
     Dosage: 150 MG
     Route: 058
     Dates: start: 20220318, end: 20220318
  3. ILARIS [Suspect]
     Active Substance: CANAKINUMAB
     Dosage: 150 MG
     Route: 058
     Dates: start: 20220415, end: 20220415
  4. ILARIS [Suspect]
     Active Substance: CANAKINUMAB
     Dosage: 150 MG
     Route: 058
     Dates: start: 20220513, end: 20220513
  5. ILARIS [Suspect]
     Active Substance: CANAKINUMAB
     Dosage: 150 MG
     Route: 058
     Dates: start: 20220617, end: 20220617
  6. ILARIS [Suspect]
     Active Substance: CANAKINUMAB
     Dosage: 150 MG
     Route: 058
     Dates: start: 20220715, end: 20220715
  7. ILARIS [Suspect]
     Active Substance: CANAKINUMAB
     Dosage: 150 MG
     Route: 058
     Dates: start: 20220812, end: 20220812
  8. ILARIS [Suspect]
     Active Substance: CANAKINUMAB
     Dosage: 150 MG
     Route: 058
     Dates: start: 20230217, end: 20230217
  9. ILARIS [Suspect]
     Active Substance: CANAKINUMAB
     Dosage: 150 MG
     Route: 058
     Dates: start: 20230317, end: 20230317
  10. ILARIS [Suspect]
     Active Substance: CANAKINUMAB
     Dosage: 150 MG
     Route: 058
     Dates: start: 20230414, end: 20230414
  11. ILARIS [Suspect]
     Active Substance: CANAKINUMAB
     Dosage: 150 MG
     Route: 058
     Dates: start: 20230512, end: 20230512
  12. ILARIS [Suspect]
     Active Substance: CANAKINUMAB
     Dosage: 150 MG
     Route: 058
     Dates: start: 20230616, end: 20230616
  13. ILARIS [Suspect]
     Active Substance: CANAKINUMAB
     Dosage: 150 MG
     Route: 058
     Dates: start: 20230721, end: 20230721
  14. ILARIS [Suspect]
     Active Substance: CANAKINUMAB
     Dosage: 150 MG
     Route: 058
     Dates: start: 20230818, end: 20230818
  15. COLCHICINE [Concomitant]
     Active Substance: COLCHICINE
     Indication: Familial mediterranean fever
     Dosage: 1 MG
     Route: 048
     Dates: start: 2021, end: 20230818

REACTIONS (8)
  - Arthropathy [Not Recovered/Not Resolved]
  - Arthralgia [Unknown]
  - Abdominal pain [Recovered/Resolved]
  - Pyrexia [Unknown]
  - C-reactive protein increased [Unknown]
  - Therapeutic response decreased [Recovered/Resolved]
  - Therapeutic product effect delayed [Recovering/Resolving]
  - Therapeutic product effect incomplete [Unknown]

NARRATIVE: CASE EVENT DATE: 20220201
